FAERS Safety Report 8962877 (Version 2)
Quarter: 2013Q1

REPORT INFORMATION
  Report Type: Spontaneous
  Country: US (occurrence: US)
  Receive Date: 20121214
  Receipt Date: 20130116
  Transmission Date: 20140127
  Serious: Yes (Other)
  Sender: FDA-Public Use
  Company Number: US-PFIZER INC-2012310348

PATIENT
  Age: 69 Year
  Sex: Male

DRUGS (3)
  1. VIAGRA [Suspect]
     Dosage: 100 MG, 1 TAB DAILY (QD), AS NEEDED
  2. CARDURA [Concomitant]
     Dosage: 8 MG, 1X/DAY
     Route: 048
  3. FLOMAX [Concomitant]
     Dosage: UNK

REACTIONS (2)
  - Prostate cancer [Recovering/Resolving]
  - Eczema [Unknown]
